FAERS Safety Report 13931901 (Version 2)
Quarter: 2017Q3

REPORT INFORMATION
  Report Type: Spontaneous
  Country: KR (occurrence: KR)
  Receive Date: 20170904
  Receipt Date: 20170915
  Transmission Date: 20171127
  Serious: Yes (Other)
  Sender: FDA-Public Use
  Company Number: KR-VISTAPHARM, INC.-VER201708-000412

PATIENT
  Age: 35 Year
  Sex: Male

DRUGS (2)
  1. PHENYTOIN. [Suspect]
     Active Substance: PHENYTOIN
  2. VALPROIC ACID. [Concomitant]
     Active Substance: VALPROIC ACID

REACTIONS (10)
  - Polyneuropathy [Unknown]
  - Toxicity to various agents [Unknown]
  - Nasopharyngeal reflux [Unknown]
  - Cerebral atrophy [Unknown]
  - Tonsillar hypertrophy [Recovered/Resolved]
  - Velopharyngeal incompetence [Recovered/Resolved]
  - Sleep apnoea syndrome [Recovered/Resolved]
  - Gingival hypertrophy [Recovering/Resolving]
  - Snoring [Unknown]
  - Dysphagia [Recovered/Resolved]
